FAERS Safety Report 10979042 (Version 2)
Quarter: 2015Q2

REPORT INFORMATION
  Report Type: Spontaneous
  Country: US (occurrence: US)
  Receive Date: 20150402
  Receipt Date: 20150515
  Transmission Date: 20150821
  Serious: No
  Sender: FDA-Public Use
  Company Number: US-PFIZER INC-2015112327

PATIENT
  Age: 78 Year
  Sex: Female
  Weight: 68 kg

DRUGS (22)
  1. ISOSORBIDE [Suspect]
     Active Substance: ISOSORBIDE
     Indication: CARDIAC FAILURE CONGESTIVE
     Dosage: 30 MG, 1X/DAY
     Dates: start: 20150301
  2. CANDESARTAN [Suspect]
     Active Substance: CANDESARTAN
     Indication: CARDIAC FAILURE CONGESTIVE
     Dosage: 25 MG, 1X/DAY
     Dates: start: 20141111
  3. LANTUS [Concomitant]
     Active Substance: INSULIN GLARGINE
     Dosage: 40 UNITS. AT LEAST TWICE A DAY, 20 UNITS AT A TIME
     Dates: start: 2010
  4. ARMOUR THYROID [Suspect]
     Active Substance: THYROID, PORCINE\THYROID, UNSPECIFIED
     Dosage: 15 MG, 1X/DAY
     Dates: start: 20141010
  5. VENTOLIN HFA [Suspect]
     Active Substance: ALBUTEROL SULFATE
     Indication: DYSPNOEA
     Dosage: 2 DF, AS NEEDED (2 PUFFS EVERY 6 HRS IF NEEDED)
     Dates: start: 2013
  6. LYRICA [Suspect]
     Active Substance: PREGABALIN
     Indication: DIABETIC NEUROPATHY
     Dosage: 300 MG, 2X/DAY, ( WORKS BEST) AT 300 MG EVERY 8 HOURS
     Dates: start: 20150326
  7. OXYCODONE [Suspect]
     Active Substance: OXYCODONE
     Indication: PAIN
     Dosage: 5 MG, 5-6 DAILY
     Dates: start: 20111212
  8. SPIRONOLACTONE. [Suspect]
     Active Substance: SPIRONOLACTONE
     Indication: CARDIAC FAILURE CONGESTIVE
     Dosage: 25 MG, 1X/DAY
     Dates: start: 20140909
  9. ACETYLSALICYLIC ACID/BUTALBITAL/CAFFEINE [Suspect]
     Active Substance: ASPIRIN\BUTALBITAL\CAFFEINE
     Indication: MIGRAINE
     Dosage: BUTA 50MG ASPIRIN 325 CAFFEINE 40MG
     Dates: start: 1960
  10. FUROSEMIDE. [Suspect]
     Active Substance: FUROSEMIDE
     Indication: CARDIAC FAILURE CONGESTIVE
     Dosage: 20 MG, 2X/DAY
     Dates: start: 20140826
  11. ARMOUR THYROID [Suspect]
     Active Substance: THYROID, PORCINE\THYROID, UNSPECIFIED
     Indication: THYROID DISORDER
     Dosage: 15 MG, UNK
     Dates: start: 1962
  12. NOVOLOG [Concomitant]
     Active Substance: INSULIN ASPART
     Indication: DIABETES MELLITUS
     Dosage: 10-20 UNITS A DAY
     Dates: start: 2011
  13. LYRICA [Suspect]
     Active Substance: PREGABALIN
     Indication: PAIN
     Dosage: UNK
     Dates: start: 20150302
  14. LYRICA [Suspect]
     Active Substance: PREGABALIN
     Indication: PAIN
  15. CARVEDILOL. [Suspect]
     Active Substance: CARVEDILOL
     Indication: CARDIAC FAILURE CONGESTIVE
     Dosage: 6.25 MG, 2X/DAY
     Dates: start: 20110620
  16. ADAPIN [Suspect]
     Active Substance: DOXEPIN HYDROCHLORIDE
     Dosage: UNK
  17. ADVAIR HFA [Suspect]
     Active Substance: FLUTICASONE PROPIONATE\SALMETEROL XINAFOATE
     Indication: CHRONIC OBSTRUCTIVE PULMONARY DISEASE
     Dosage: 20 MG, 2X/DAY
     Dates: start: 20140826
  18. LYRICA [Suspect]
     Active Substance: PREGABALIN
     Indication: FIBROMYALGIA
     Dosage: 300 MG, 2X/DAY
     Dates: start: 20150327
  19. APRISO [Suspect]
     Active Substance: MESALAMINE
     Dosage: UNK
  20. NITROGLYCERIN. [Suspect]
     Active Substance: NITROGLYCERIN
     Indication: CHEST PAIN
     Dosage: 0.4 MG, AS NEEDED
     Dates: start: 20100903
  21. GABAPENTIN. [Suspect]
     Active Substance: GABAPENTIN
     Indication: DIABETIC NEUROPATHY
     Dosage: 600 MG, EIGHT TIMES A DAY
     Dates: start: 2013, end: 20150327
  22. GABAPENTIN. [Suspect]
     Active Substance: GABAPENTIN
     Indication: PAIN
     Dosage: 1200 MG, 4X/DAY
     Dates: start: 20130808

REACTIONS (7)
  - Intentional product misuse [Unknown]
  - Reaction to drug excipients [Not Recovered/Not Resolved]
  - Somnolence [Unknown]
  - Hypoaesthesia oral [Unknown]
  - Burning sensation [Not Recovered/Not Resolved]
  - Cataract [Unknown]
  - Pain [Not Recovered/Not Resolved]

NARRATIVE: CASE EVENT DATE: 201403
